APPROVED DRUG PRODUCT: ACYCLOVIR SODIUM
Active Ingredient: ACYCLOVIR SODIUM
Strength: EQ 1GM BASE/VIAL
Dosage Form/Route: INJECTABLE;INJECTION
Application: A206606 | Product #002
Applicant: ZYDUS PHARMACEUTICALS USA INC
Approved: Jun 13, 2017 | RLD: No | RS: No | Type: DISCN